FAERS Safety Report 5532089-0 (Version None)
Quarter: 2007Q4

REPORT INFORMATION
  Report Type: 
  Country: None (occurrence: None)
  Receive Date: 20071203
  Receipt Date: 20071128
  Transmission Date: 20080405
  Serious: Yes (Hospitalization, Other)
  Sender: FDA-Public Use
  Company Number: B0497804A

PATIENT
  Age: 41 Year
  Sex: Female

DRUGS (4)
  1. RANITIDINE HYDROCHLORIDE [Suspect]
     Dates: start: 20071027
  2. REBAMIPIDE [Suspect]
     Dates: start: 20071027
  3. NAUZELIN [Suspect]
     Route: 048
     Dates: start: 20071027, end: 20071027
  4. TIMEPIDIUM BROMIDE [Suspect]
     Dates: start: 20071027

REACTIONS (4)
  - DRUG HYPERSENSITIVITY [None]
  - PHARYNGEAL OEDEMA [None]
  - PRURITUS [None]
  - SWELLING FACE [None]
